FAERS Safety Report 25540345 (Version 1)
Quarter: 2025Q3

REPORT INFORMATION
  Report Type: Spontaneous
  Country: EU (occurrence: EU)
  Receive Date: 20250710
  Receipt Date: 20250710
  Transmission Date: 20251021
  Serious: Yes (Hospitalization)
  Sender: MYLAN
  Company Number: None

PATIENT
  Age: 12 Year
  Sex: Male
  Weight: 43 kg

DRUGS (16)
  1. ACETAMINOPHEN [Suspect]
     Active Substance: ACETAMINOPHEN
     Indication: Product used for unknown indication
  2. ACETAMINOPHEN [Suspect]
     Active Substance: ACETAMINOPHEN
     Route: 048
  3. ACETAMINOPHEN [Suspect]
     Active Substance: ACETAMINOPHEN
     Route: 048
  4. ACETAMINOPHEN [Suspect]
     Active Substance: ACETAMINOPHEN
  5. AMOXICILLIN [Suspect]
     Active Substance: AMOXICILLIN
     Indication: Tonsillitis
     Dosage: 1 GRAM, BID, 1-0-1
     Dates: start: 20250515, end: 20250522
  6. AMOXICILLIN [Suspect]
     Active Substance: AMOXICILLIN
     Dosage: 1 GRAM, BID, 1-0-1
     Route: 048
     Dates: start: 20250515, end: 20250522
  7. AMOXICILLIN [Suspect]
     Active Substance: AMOXICILLIN
     Dosage: 1 GRAM, BID, 1-0-1
     Route: 048
     Dates: start: 20250515, end: 20250522
  8. AMOXICILLIN [Suspect]
     Active Substance: AMOXICILLIN
     Dosage: 1 GRAM, BID, 1-0-1
     Dates: start: 20250515, end: 20250522
  9. ESCARGOT [Suspect]
     Active Substance: ESCARGOT
     Indication: Product used for unknown indication
  10. ESCARGOT [Suspect]
     Active Substance: ESCARGOT
     Route: 048
  11. ESCARGOT [Suspect]
     Active Substance: ESCARGOT
     Route: 048
  12. ESCARGOT [Suspect]
     Active Substance: ESCARGOT
  13. CARBOCYSTEINE [Suspect]
     Active Substance: CARBOCYSTEINE
     Indication: Product used for unknown indication
  14. CARBOCYSTEINE [Suspect]
     Active Substance: CARBOCYSTEINE
     Route: 048
  15. CARBOCYSTEINE [Suspect]
     Active Substance: CARBOCYSTEINE
     Route: 048
  16. CARBOCYSTEINE [Suspect]
     Active Substance: CARBOCYSTEINE

REACTIONS (1)
  - Drug reaction with eosinophilia and systemic symptoms [Recovering/Resolving]

NARRATIVE: CASE EVENT DATE: 20250529
